FAERS Safety Report 8756946 (Version 1)
Quarter: 2012Q4

REPORT INFORMATION
  Report Type: 
  Country: US (occurrence: US)
  Receive Date: 20120828
  Receipt Date: 20120828
  Transmission Date: 20130627
  Serious: No
  Sender: FDA-Public Use
  Company Number: US-BAYER-2012-087367

PATIENT
  Age: 70 Year
  Sex: Female
  Weight: 44 kg

DRUGS (5)
  1. ALEVE CAPLET/TABLET,MIDOL EXTENDED RELIEF CAPLET [Suspect]
     Indication: MYALGIA
     Dosage: 2 DF, PRN
     Route: 048
     Dates: start: 201206
  2. ALEVE CAPLET/TABLET,MIDOL EXTENDED RELIEF CAPLET [Suspect]
     Indication: MYALGIA
     Dosage: 2 DF, BID
     Route: 048
     Dates: start: 20120811
  3. GUAIFENESIN [Concomitant]
  4. TRAZODONE [Concomitant]
  5. MELATONIN [Concomitant]

REACTIONS (1)
  - Increased tendency to bruise [Not Recovered/Not Resolved]
